FAERS Safety Report 9224759 (Version 1)
Quarter: 2013Q2

REPORT INFORMATION
  Report Type: Spontaneous
  Country: JP (occurrence: JP)
  Receive Date: 20130411
  Receipt Date: 20130411
  Transmission Date: 20140414
  Serious: Yes (Other)
  Sender: FDA-Public Use
  Company Number: JP-ASTELLAS-2013JP004192

PATIENT
  Age: 67 Year
  Sex: Male

DRUGS (2)
  1. VESICARE [Suspect]
     Indication: HYPERTONIC BLADDER
     Dosage: 2.5 MG, UID/QD
     Route: 048
     Dates: end: 2013
  2. HARNAL [Concomitant]
     Indication: BENIGN PROSTATIC HYPERPLASIA
     Dosage: 0.2 MG, UID/QD
     Route: 048

REACTIONS (1)
  - Butterfly rash [Recovered/Resolved]
